FAERS Safety Report 8507707 (Version 3)
Quarter: 2012Q4

REPORT INFORMATION
  Report Type: 
  Country: US (occurrence: US)
  Receive Date: 20120412
  Receipt Date: 20121001
  Transmission Date: 20130627
  Serious: No
  Sender: FDA-Public Use
  Company Number: US-ASTRAZENECA-2011SE36426

PATIENT
  Age: 60 Year
  Sex: Female
  Weight: 64.9 kg

DRUGS (26)
  1. NEXIUM [Suspect]
     Route: 048
  2. LISINOPRIL [Suspect]
     Route: 048
  3. CRESTOR [Suspect]
     Route: 048
  4. UNSPECIFIED ANTIBIOTICS [Suspect]
     Route: 065
  5. ALBUTEROL [Concomitant]
  6. CARVEDILOL [Concomitant]
  7. CEFTIN [Concomitant]
  8. CHOLESTYRAMINE [Concomitant]
  9. CLEOCIN HCL [Concomitant]
  10. CLONIDINE [Concomitant]
  11. CYMBALTA [Concomitant]
  12. ESOMEPRAZOLE [Concomitant]
  13. FUROSEMIDE [Concomitant]
  14. HYDRALAZINE [Concomitant]
  15. K-DUR [Concomitant]
  16. LEVAQUIN [Concomitant]
  17. LORTAB [Concomitant]
  18. LOVENOX [Concomitant]
  19. MAALOX THERAPEUTIC CONCENTRATE [Concomitant]
  20. MEPRON [Concomitant]
  21. PHENERGAN [Concomitant]
  22. SOMA TABLETS [Concomitant]
  23. VIT D [Concomitant]
  24. VERMOX [Concomitant]
  25. XANAX [Concomitant]
  26. ZITHROMYCIN [Concomitant]

REACTIONS (8)
  - Lyme disease [Unknown]
  - Gastritis [Unknown]
  - Oesophageal pain [Unknown]
  - Pain [Unknown]
  - Eructation [Unknown]
  - Gastrooesophageal reflux disease [Unknown]
  - Abdominal pain upper [Unknown]
  - Drug dose omission [Unknown]
